FAERS Safety Report 10071737 (Version 10)
Quarter: 2014Q3

REPORT INFORMATION
  Report Type: Report from Study
  Country: DE (occurrence: DE)
  Receive Date: 20140411
  Receipt Date: 20140729
  Transmission Date: 20150326
  Serious: Yes (Hospitalization)
  Sender: FDA-Public Use
  Company Number: DE-ROCHE-1370379

PATIENT
  Age: 59 Year
  Sex: Male
  Weight: 94 kg

DRUGS (13)
  1. LACTULOSE. [Concomitant]
     Active Substance: LACTULOSE
     Indication: CONSTIPATION
     Route: 065
     Dates: start: 20140316, end: 20140318
  2. AMPHO MORONAL [Concomitant]
     Indication: MUCOSAL INFLAMMATION
     Route: 065
     Dates: start: 20140212
  3. BELOC-ZOK MITE [Concomitant]
     Active Substance: METOPROLOL SUCCINATE
     Indication: CORONARY ARTERY DISEASE
     Route: 065
     Dates: start: 20140319
  4. RANITIDIN [Concomitant]
     Active Substance: RANITIDINE HYDROCHLORIDE
     Indication: GASTROOESOPHAGEAL REFLUX DISEASE
     Route: 065
     Dates: start: 20140127
  5. MERONEM [Concomitant]
     Active Substance: MEROPENEM
     Indication: INFECTION
     Route: 065
     Dates: start: 20140306, end: 20140319
  6. CIPROBAY [Concomitant]
     Active Substance: CIPROFLOXACIN
     Indication: INFECTION
     Route: 065
     Dates: start: 20140320
  7. MACROGOL [Concomitant]
     Active Substance: POLYETHYLENE GLYCOLS
     Indication: CONSTIPATION
     Route: 065
     Dates: start: 20140314, end: 20140317
  8. NOXAFIL [Concomitant]
     Active Substance: POSACONAZOLE
     Indication: INFECTION
     Route: 065
     Dates: start: 20140216, end: 20140314
  9. TRAMAL [Concomitant]
     Active Substance: TRAMADOL
     Indication: PAIN
     Route: 065
     Dates: start: 20140315
  10. VISMODEGIB [Suspect]
     Active Substance: VISMODEGIB
     Indication: MYELODYSPLASTIC SYNDROME
  11. VANCOMYCIN [Concomitant]
     Active Substance: VANCOMYCIN
     Indication: INFECTION
     Route: 065
     Dates: start: 20140311, end: 20140319
  12. VISMODEGIB [Suspect]
     Active Substance: VISMODEGIB
     Indication: ACUTE MYELOID LEUKAEMIA
     Dosage: DATE OF MOST RECENT DOSE OF VISMODEGIB PRIOR TO PORT IMPLANTATION: 14/APR/2014.?ON THE 08/APR/2014,
     Route: 048
     Dates: start: 20140313
  13. VERGENTAN [Concomitant]
     Indication: NAUSEA
     Route: 065
     Dates: start: 20140314, end: 20140314

REACTIONS (7)
  - Infection [Not Recovered/Not Resolved]
  - Urinary tract pain [Not Recovered/Not Resolved]
  - Urinary retention [Not Recovered/Not Resolved]
  - Haemorrhoids [Not Recovered/Not Resolved]
  - Central venous catheterisation [Recovered/Resolved]
  - Thrombocytopenia [Not Recovered/Not Resolved]
  - Abdominal pain [Not Recovered/Not Resolved]

NARRATIVE: CASE EVENT DATE: 20140321
